FAERS Safety Report 21308179 (Version 1)
Quarter: 2022Q3

REPORT INFORMATION
  Report Type: Spontaneous
  Country: US (occurrence: None)
  Receive Date: 20220908
  Receipt Date: 20220908
  Transmission Date: 20221026
  Serious: Yes (Other)
  Sender: FDA-Public Use
  Company Number: None

PATIENT
  Age: 20 Year
  Sex: Male
  Weight: 101.6 kg

DRUGS (1)
  1. LINZESS [Suspect]
     Active Substance: LINACLOTIDE
     Indication: Constipation
     Dosage: FREQUENCY : DAILY;?
     Route: 048
     Dates: start: 20030501, end: 20220831

REACTIONS (9)
  - Diarrhoea [None]
  - Dehydration [None]
  - Hyperhidrosis [None]
  - Dyspnoea [None]
  - Seizure [None]
  - Abnormal behaviour [None]
  - Therapy cessation [None]
  - Intentional dose omission [None]
  - Loss of consciousness [None]

NARRATIVE: CASE EVENT DATE: 20220808
